FAERS Safety Report 23064637 (Version 1)
Quarter: 2023Q4

REPORT INFORMATION
  Report Type: Spontaneous
  Country: FR (occurrence: FR)
  Receive Date: 20231013
  Receipt Date: 20231013
  Transmission Date: 20240109
  Serious: Yes (Life-Threatening, Hospitalization)
  Sender: FDA-Public Use
  Company Number: FR-SUN PHARMACEUTICAL INDUSTRIES LTD-2023RR-412456

PATIENT
  Age: 83 Year
  Sex: Female
  Weight: 43 kg

DRUGS (8)
  1. GEMCITABINE [Suspect]
     Active Substance: GEMCITABINE
     Indication: Cholangiocarcinoma
     Dosage: 1128 MILLIGRAM, 1DOSE/1CYCLIC
     Route: 040
     Dates: start: 20230504, end: 20230504
  2. GEMCITABINE [Suspect]
     Active Substance: GEMCITABINE
     Dosage: 1140 MILLIGRAM, 1DOSE/1CYCLIC
     Route: 065
     Dates: start: 20230413, end: 20230413
  3. GEMCITABINE [Suspect]
     Active Substance: GEMCITABINE
     Dosage: 1128 MILLIGRAM, 1DOSE/1CYCLIC
     Route: 065
     Dates: start: 20230420, end: 20230420
  4. DURVALUMAB [Suspect]
     Active Substance: DURVALUMAB
     Indication: Cholangiocarcinoma
     Dosage: 1500 MILLIGRAM, 1DOSE/1CYCLIC
     Route: 040
     Dates: start: 20230504, end: 20230504
  5. DURVALUMAB [Suspect]
     Active Substance: DURVALUMAB
     Dosage: 1500 MILLIGRAM, 1DOSE/1CYCLIC
     Route: 065
     Dates: start: 20230413, end: 20230413
  6. CISPLATIN [Suspect]
     Active Substance: CISPLATIN
     Indication: Cholangiocarcinoma
     Dosage: 28 MILLIGRAM, 1DOSE/1CYCLIC
     Route: 040
     Dates: start: 20230420, end: 20230420
  7. CISPLATIN [Suspect]
     Active Substance: CISPLATIN
     Dosage: 28 MILLIGRAM, 1DOSE/1CYCLIC
     Route: 065
     Dates: start: 20230413, end: 20230413
  8. CISPLATIN [Suspect]
     Active Substance: CISPLATIN
     Dosage: 28 MILLIGRAM, 1DOSE/1CYCLIC
     Route: 065
     Dates: start: 20230504, end: 20230504

REACTIONS (1)
  - Peritonitis [Recovered/Resolved]

NARRATIVE: CASE EVENT DATE: 20230506
